FAERS Safety Report 7978432-4 (Version None)
Quarter: 2011Q4

REPORT INFORMATION
  Report Type: 
  Country: None (occurrence: None)
  Receive Date: 20111129
  Receipt Date: 20110706
  Transmission Date: 20120403
  Serious: No
  Sender: FDA-Public Use
  Company Number: PHHY2011US60534

PATIENT
  Age: 75 Year
  Sex: Male

DRUGS (1)
  1. AFINITOR [Suspect]

REACTIONS (4)
  - FATIGUE [None]
  - RESPIRATORY DISORDER [None]
  - RASH [None]
  - ASTHENIA [None]
